FAERS Safety Report 9638051 (Version 2)
Quarter: 2013Q4

REPORT INFORMATION
  Report Type: Spontaneous
  Country: US (occurrence: US)
  Receive Date: 20131022
  Receipt Date: 20131121
  Transmission Date: 20140711
  Serious: No
  Sender: FDA-Public Use
  Company Number: US-PFIZER INC-2013300396

PATIENT
  Age: 41 Year
  Sex: Female
  Weight: 43.08 kg

DRUGS (7)
  1. CHANTIX [Suspect]
     Indication: SMOKING CESSATION THERAPY
     Dosage: 0.5 MG, 1X/DAY
     Route: 048
     Dates: start: 201306, end: 201306
  2. CHANTIX [Suspect]
     Dosage: 1 MG, 2X/DAY
     Route: 048
     Dates: start: 201306, end: 201306
  3. CHANTIX [Suspect]
     Dosage: 1 MG, 1X/DAY
     Route: 048
     Dates: start: 201306, end: 201306
  4. FLORINEF [Concomitant]
     Indication: HYPOTENSION
     Dosage: UNK
  5. GABAPENTIN [Concomitant]
     Indication: FIBROMYALGIA
     Dosage: 300 MG, 4X/DAY
     Route: 048
     Dates: end: 2011
  6. GABAPENTIN [Concomitant]
     Dosage: 300 MG, 3X/DAY
     Route: 048
     Dates: start: 2011
  7. SAVELLA [Concomitant]
     Indication: FIBROMYALGIA
     Dosage: UNK
     Dates: start: 2011, end: 2013

REACTIONS (5)
  - Vitamin D decreased [Unknown]
  - Blood calcium decreased [Unknown]
  - Vomiting [Recovered/Resolved]
  - Malaise [Recovered/Resolved]
  - Nausea [Recovered/Resolved]
